FAERS Safety Report 6698285-4 (Version None)
Quarter: 2010Q2

REPORT INFORMATION
  Report Type: 
  Country: None (occurrence: None)
  Receive Date: 20100426
  Receipt Date: 20100426
  Transmission Date: 20101027
  Serious: Yes (Life-Threatening, Hospitalization, Disabling)
  Sender: FDA-Public Use
  Company Number: None

PATIENT
  Sex: Female
  Weight: 68.0396 kg

DRUGS (1)
  1. MIRENA [Suspect]
     Indication: CONTRACEPTION
     Dates: start: 20080925, end: 20090829

REACTIONS (4)
  - ADHESION [None]
  - MOBILITY DECREASED [None]
  - PAIN [None]
  - PELVIC INFLAMMATORY DISEASE [None]
